FAERS Safety Report 16386008 (Version 3)
Quarter: 2019Q3

REPORT INFORMATION
  Report Type: Report from Study
  Country: MX (occurrence: MX)
  Receive Date: 20190603
  Receipt Date: 20190701
  Transmission Date: 20191004
  Serious: Yes (Life-Threatening, Hospitalization)
  Sender: FDA-Public Use
  Company Number: PHHY2019MX124945

PATIENT
  Age: 53 Year
  Sex: Male
  Weight: 76 kg

DRUGS (4)
  1. SELOKEN [Concomitant]
     Active Substance: METOPROLOL
     Indication: HYPERTENSION
     Dosage: 1 DF, QHS
     Route: 048
  2. TRAYENTA DUO [Concomitant]
     Active Substance: LINAGLIPTIN\METFORMIN HYDROCHLORIDE
     Indication: DIABETES MELLITUS
     Dosage: 1 DF, QD (ONCE WITH FOOD) (SINCE MANY YEARS AGO)
     Route: 048
  3. EXFORGE HCT [Suspect]
     Active Substance: AMLODIPINE BESYLATE\HYDROCHLOROTHIAZIDE\VALSARTAN
     Dosage: 1 DF (AMLODIPINE 5 MG, HYDROCHLOROTHIAZIDE 12.5 MG, VALSARTAN 160 MG), QD
     Route: 048
     Dates: start: 20190528
  4. EXFORGE HCT [Suspect]
     Active Substance: AMLODIPINE BESYLATE\HYDROCHLOROTHIAZIDE\VALSARTAN
     Indication: HYPERTENSION
     Dosage: 1 DF (AMLODIPINE 10 MG, HYDROCHLOROTHIAZIDE 25 MG, VALSARTAN 320 MG), QD
     Route: 048
     Dates: end: 20190528

REACTIONS (2)
  - Renal failure [Not Recovered/Not Resolved]
  - Peripheral swelling [Recovering/Resolving]

NARRATIVE: CASE EVENT DATE: 20190527
